FAERS Safety Report 21974912 (Version 1)
Quarter: 2023Q1

REPORT INFORMATION
  Report Type: Spontaneous
  Country: FR (occurrence: FR)
  Receive Date: 20230209
  Receipt Date: 20230209
  Transmission Date: 20230417
  Serious: Yes (Other)
  Sender: FDA-Public Use
  Company Number: FR-SEATTLE GENETICS-2023SGN01413

PATIENT

DRUGS (3)
  1. TUKYSA [Suspect]
     Active Substance: TUCATINIB
     Indication: Product used for unknown indication
     Dosage: 50 MG
     Route: 065
     Dates: end: 20230110
  2. TUKYSA [Suspect]
     Active Substance: TUCATINIB
     Dosage: 50 MG
     Route: 065
     Dates: end: 20230110
  3. TUKYSA [Suspect]
     Active Substance: TUCATINIB
     Dosage: 150 MG
     Route: 065
     Dates: end: 20230110

REACTIONS (1)
  - Malignant neoplasm progression [Unknown]
